FAERS Safety Report 5300028-3 (Version None)
Quarter: 2007Q2

REPORT INFORMATION
  Report Type: 
  Country: None (occurrence: None)
  Receive Date: 20070410
  Receipt Date: 20070326
  Transmission Date: 20071010
  Serious: Yes (Life-Threatening)
  Sender: FDA-Public Use
  Company Number: B0463439A

PATIENT
  Age: 78 Year
  Sex: Female

DRUGS (2)
  1. ARIXTRA [Suspect]
     Indication: PHLEBITIS
     Dosage: SUBCUTANEOUS
     Route: 058
     Dates: start: 20060801, end: 20060919
  2. FRUSEMIDE [Concomitant]

REACTIONS (8)
  - APHASIA [None]
  - CEREBRAL HAEMATOMA [None]
  - CONFUSIONAL STATE [None]
  - DISORIENTATION [None]
  - HEMIPARESIS [None]
  - HYPERTHERMIA [None]
  - PLATELET COUNT DECREASED [None]
  - STUPOR [None]
